FAERS Safety Report 11431453 (Version 1)
Quarter: 2015Q3

REPORT INFORMATION
  Report Type: Spontaneous
  Country: GB (occurrence: GB)
  Receive Date: 20150828
  Receipt Date: 20150828
  Transmission Date: 20151125
  Serious: Yes (Other)
  Sender: FDA-Public Use
  Company Number: GB-JNJFOC-20150817361

PATIENT
  Age: 3 Decade
  Sex: Male
  Weight: 70 kg

DRUGS (1)
  1. CANAGLIFLOZIN [Suspect]
     Active Substance: CANAGLIFLOZIN
     Indication: TYPE 2 DIABETES MELLITUS
     Dosage: DOSE: 100
     Route: 065
     Dates: end: 20150812

REACTIONS (2)
  - Ketosis [Recovered/Resolved]
  - Blood ketone body increased [Recovered/Resolved]

NARRATIVE: CASE EVENT DATE: 20150808
